FAERS Safety Report 8832479 (Version 1)
Quarter: 2012Q4

REPORT INFORMATION
  Report Type: Spontaneous
  Country: DK (occurrence: None)
  Receive Date: 20121005
  Receipt Date: 20121005
  Transmission Date: 20130627
  Serious: Yes (Other)
  Sender: FDA-Public Use
  Company Number: 2012MA011814

PATIENT
  Sex: Female

DRUGS (9)
  1. TRAMADOL HYDROCHLORIDE [Suspect]
     Indication: DRUG USE FOR UNKNOWN INDICATION
  2. HYDROMORPHONE [Suspect]
     Indication: DRUG USE FOR UNKNOWN INDICATION
  3. EFFENTORA [Suspect]
     Indication: DRUG USE FOR UNKNOWN INDICATION
  4. ACTIQ [Suspect]
     Indication: DRUG USE FOR UNKNOWN INDICATION
  5. ABSTRAL [Suspect]
     Indication: DRUG USE FOR UNKNOWN INDICATION
  6. ZOMORPH [Suspect]
     Indication: DRUG USE FOR UNKNOWN INDICATION
  7. DUROGESIC [Suspect]
     Indication: DRUG USE FOR UNKNOWN INDICATION
  8. FENTANYL [Suspect]
     Indication: DRUG USE FOR UNKNOWN INDICATION
  9. MEZOLAR [Suspect]
     Indication: DRUG USE FOR UNKNOWN INDICATION

REACTIONS (9)
  - Incorrect dose administered [None]
  - Tablet physical issue [None]
  - Product quality issue [None]
  - Urticaria [None]
  - Drug hypersensitivity [None]
  - Hypotension [None]
  - Dyspnoea [None]
  - Skin reaction [None]
  - Product adhesion issue [None]
